FAERS Safety Report 8947715 (Version 2)
Quarter: 2015Q1

REPORT INFORMATION
  Report Type: Report from Study
  Country: FR (occurrence: FR)
  Receive Date: 20121205
  Receipt Date: 20150223
  Transmission Date: 20150721
  Serious: Yes (Death, Hospitalization)
  Sender: FDA-Public Use
  Company Number: FR-ROCHE-1163519

PATIENT
  Age: 85 Year
  Sex: Female

DRUGS (8)
  1. RITUXIMAB [Suspect]
     Active Substance: RITUXIMAB
     Route: 042
     Dates: start: 20071016
  2. RITUXIMAB [Suspect]
     Active Substance: RITUXIMAB
     Route: 042
     Dates: start: 20090527
  3. ARAVA [Concomitant]
     Active Substance: LEFLUNOMIDE
     Route: 065
  4. CORTANCYL [Concomitant]
     Active Substance: PREDNISONE
     Dosage: 12.5 MG FOR FIRST INFUSION AND 10 MG FOR SECOND INFUSION.
     Route: 065
  5. RITUXIMAB [Suspect]
     Active Substance: RITUXIMAB
     Route: 042
     Dates: start: 20090512
  6. CORTANCYL [Concomitant]
     Active Substance: PREDNISONE
     Route: 065
  7. RITUXIMAB [Suspect]
     Active Substance: RITUXIMAB
     Indication: RHEUMATOID ARTHRITIS
     Route: 042
     Dates: start: 20071002
  8. SALAZOPYRINE [Concomitant]
     Active Substance: SULFASALAZINE
     Route: 065

REACTIONS (7)
  - Death [Fatal]
  - Vomiting [Recovered/Resolved]
  - Confusional state [Recovered/Resolved]
  - Dehydration [Recovered/Resolved]
  - Urinary tract infection [Recovered/Resolved]
  - Bronchopneumonia [Recovered/Resolved]
  - Diarrhoea [Recovered/Resolved]

NARRATIVE: CASE EVENT DATE: 20080401
